FAERS Safety Report 23787948 (Version 1)
Quarter: 2024Q2

REPORT INFORMATION
  Report Type: Spontaneous
  Country: JP (occurrence: JP)
  Receive Date: 20240426
  Receipt Date: 20240426
  Transmission Date: 20240715
  Serious: Yes (Other)
  Sender: FDA-Public Use
  Company Number: JP-BRISTOL-MYERS SQUIBB COMPANY-2024-017428

PATIENT
  Age: 77 Year
  Sex: Male
  Weight: 75 kg

DRUGS (6)
  1. ELIQUIS [Suspect]
     Active Substance: APIXABAN
     Indication: Embolism venous
     Dosage: 5 MG TWICE DAILY WAS PRESCRIBED FOR 30 DAYS.
     Route: 048
     Dates: start: 20200221, end: 20240129
  2. ELIQUIS [Suspect]
     Active Substance: APIXABAN
     Dosage: 2.5 MG TWICE DAILY WAS PRESCRIBED FOR 70 DAYS.
     Route: 048
     Dates: start: 20240129
  3. BEPRIDIL [Suspect]
     Active Substance: BEPRIDIL
     Indication: Product used for unknown indication
     Dosage: BEPRICOR 50
     Dates: end: 2020
  4. AZOSEMIDE [Concomitant]
     Active Substance: AZOSEMIDE
     Indication: Product used for unknown indication
  5. AZOSEMIDE [Concomitant]
     Active Substance: AZOSEMIDE
  6. COVID-19 VACCINE [Concomitant]
     Indication: COVID-19 immunisation

REACTIONS (9)
  - Off label use [Unknown]
  - Epistaxis [Recovered/Resolved]
  - Arrhythmia [Unknown]
  - Oedema [Unknown]
  - Blood uric acid increased [Unknown]
  - Emotional distress [Recovered/Resolved]
  - Discomfort [Recovered/Resolved]
  - Dyspnoea [Recovered/Resolved]
  - Condition aggravated [Unknown]

NARRATIVE: CASE EVENT DATE: 20200410
